FAERS Safety Report 7350963-X (Version None)
Quarter: 2011Q1

REPORT INFORMATION
  Report Type: 
  Country: None (occurrence: None)
  Receive Date: 20110314
  Receipt Date: 20110304
  Transmission Date: 20110831
  Serious: Yes (Death)
  Sender: FDA-Public Use
  Company Number: JP-ELI_LILLY_AND_COMPANY-JP201102006141

PATIENT
  Age: 62 Year
  Sex: Male

DRUGS (4)
  1. ZYPREXA [Suspect]
     Indication: BIPOLAR DISORDER
     Dosage: 10 MG, DAILY (1/D)
     Route: 048
     Dates: start: 20101112, end: 20110221
  2. CYMBALTA [Suspect]
     Indication: DEPRESSION
     Dosage: 20 MG, DAILY (1/D)
     Route: 048
     Dates: start: 20101112, end: 20110221
  3. LIMAS [Concomitant]
     Indication: BIPOLAR I DISORDER
     Dosage: 600 MG, DAILY (1/D)
     Route: 048
     Dates: start: 20101116, end: 20110221
  4. ZOLOFT [Concomitant]
     Indication: DEPRESSION
     Dosage: UNK, UNK
     Route: 048
     Dates: start: 20101112, end: 20110221

REACTIONS (1)
  - INTERSTITIAL LUNG DISEASE [None]
